FAERS Safety Report 8466762-1 (Version None)
Quarter: 2012Q2

REPORT INFORMATION
  Report Type: 
  Country: None (occurrence: None)
  Receive Date: 20120626
  Receipt Date: 20120621
  Transmission Date: 20120825
  Serious: No
  Sender: FDA-Public Use
  Company Number: US-PFIZER INC-2012150144

PATIENT

DRUGS (1)
  1. CHANTIX [Suspect]
     Dosage: UNK

REACTIONS (6)
  - SEXUAL INHIBITION [None]
  - NICOTINE DEPENDENCE [None]
  - FEELING ABNORMAL [None]
  - FATIGUE [None]
  - HOT FLUSH [None]
  - MALAISE [None]
